FAERS Safety Report 12615551 (Version 2)
Quarter: 2016Q3

REPORT INFORMATION
  Report Type: Report from Study
  Country: US (occurrence: US)
  Receive Date: 20160802
  Receipt Date: 20160810
  Transmission Date: 20161109
  Serious: Yes (Hospitalization)
  Sender: FDA-Public Use
  Company Number: US-TEVA-680181USA

PATIENT
  Age: 66 Year
  Sex: Female

DRUGS (1)
  1. COPAXONE [Suspect]
     Active Substance: GLATIRAMER ACETATE
     Indication: MULTIPLE SCLEROSIS
     Route: 058
     Dates: start: 20160425

REACTIONS (5)
  - Multiple sclerosis relapse [Unknown]
  - Loss of consciousness [Unknown]
  - Inner ear disorder [Unknown]
  - Vertigo [Unknown]
  - Dehydration [Unknown]

NARRATIVE: CASE EVENT DATE: 20160725
